FAERS Safety Report 6943021-7 (Version None)
Quarter: 2010Q3

REPORT INFORMATION
  Report Type: 
  Country: None (occurrence: None)
  Receive Date: 20100824
  Receipt Date: 20100824
  Transmission Date: 20110219
  Serious: No
  Sender: FDA-Public Use
  Company Number: None

PATIENT
  Age: 58 Year
  Sex: Male
  Weight: 113.3993 kg

DRUGS (1)
  1. LOSARTAN 50 MG TEVA PHARMACEUTICAL - ISRAEL [Suspect]
     Indication: HYPERTENSION
     Dosage: 50 MG 1XDAY ORAL
     Route: 048
     Dates: start: 20100729, end: 20100820

REACTIONS (8)
  - DYSPNOEA [None]
  - FATIGUE [None]
  - HEART RATE INCREASED [None]
  - HEART RATE IRREGULAR [None]
  - HYPERHIDROSIS [None]
  - HYPOAESTHESIA [None]
  - MYALGIA [None]
  - PAIN IN JAW [None]
